FAERS Safety Report 26087764 (Version 1)
Quarter: 2025Q4

REPORT INFORMATION
  Report Type: Spontaneous
  Country: OM (occurrence: OM)
  Receive Date: 20251125
  Receipt Date: 20251125
  Transmission Date: 20260117
  Serious: Yes (Hospitalization, Other)
  Sender: PFIZER
  Company Number: OM-PFIZER INC-PV202500136136

PATIENT
  Age: 44 Year
  Sex: Female

DRUGS (4)
  1. CLINDAMYCIN PHOSPHATE [Suspect]
     Active Substance: CLINDAMYCIN PHOSPHATE
     Indication: Herpes simplex
     Dosage: UNK
     Route: 042
  2. LINEZOLID [Suspect]
     Active Substance: LINEZOLID
     Indication: Herpes simplex
     Dosage: UNK
     Route: 042
  3. VALACYCLOVIR HYDROCHLORIDE [Suspect]
     Active Substance: VALACYCLOVIR HYDROCHLORIDE
     Indication: Herpes simplex
     Dosage: UNK
     Route: 042
  4. TETRACYCLINE [Suspect]
     Active Substance: TETRACYCLINE
     Indication: Herpes simplex
     Dosage: UNK
     Route: 048

REACTIONS (2)
  - Haemoglobin decreased [Unknown]
  - Renal impairment [Unknown]
